FAERS Safety Report 5718349-9 (Version None)
Quarter: 2008Q2

REPORT INFORMATION
  Report Type: 
  Country: None (occurrence: None)
  Receive Date: 20080425
  Receipt Date: 20070410
  Transmission Date: 20081010
  Serious: No
  Sender: FDA-Public Use
  Company Number: A0646591A

PATIENT
  Age: 50 Year
  Sex: Female

DRUGS (6)
  1. DEXEDRINE [Suspect]
     Indication: ATTENTION DEFICIT/HYPERACTIVITY DISORDER
     Dosage: 10MG VARIABLE DOSE
     Route: 048
     Dates: start: 20060801
  2. SYNTHROID [Concomitant]
  3. GLUCOPHAGE [Concomitant]
  4. AMBIEN [Concomitant]
  5. ALDACTONE [Concomitant]
  6. CLIMARA [Concomitant]

REACTIONS (3)
  - DRUG INEFFECTIVE [None]
  - ENERGY INCREASED [None]
  - FATIGUE [None]
